FAERS Safety Report 8010017-6 (Version None)
Quarter: 2011Q4

REPORT INFORMATION
  Report Type: 
  Country: None (occurrence: None)
  Receive Date: 20111221
  Receipt Date: 20111209
  Transmission Date: 20120403
  Serious: Yes (Other)
  Sender: FDA-Public Use
  Company Number: US-006709

PATIENT
  Sex: Male
  Weight: 81.6475 kg

DRUGS (6)
  1. SIMVASTATIN ( TO CONTINUING) [Concomitant]
  2. VIAGRA ( TO UNKNOWN) [Concomitant]
  3. DEGARELIX (240 MG, 80 MG) [Suspect]
     Indication: PROSTATE CANCER
     Dosage: (240 MG 1X SUBCUTANEOUS), (80 MG 1X/MONTH SUBCUTANEOUS)
     Route: 058
     Dates: start: 20110513, end: 20110824
  4. DEGARELIX (240 MG, 80 MG) [Suspect]
     Indication: PROSTATE CANCER
     Dosage: (240 MG 1X SUBCUTANEOUS), (80 MG 1X/MONTH SUBCUTANEOUS)
     Route: 058
     Dates: start: 20110415, end: 20110415
  5. AMLODIPINE ( TO CONTINUING) [Concomitant]
  6. COLCHICINE ( TO CONTINUING) [Concomitant]

REACTIONS (3)
  - HOT FLUSH [None]
  - DEAFNESS NEUROSENSORY [None]
  - NERVOUS SYSTEM DISORDER [None]
